FAERS Safety Report 6763791-0 (Version None)
Quarter: 2010Q2

REPORT INFORMATION
  Report Type: 
  Country: None (occurrence: None)
  Receive Date: 20100610
  Receipt Date: 20100601
  Transmission Date: 20101027
  Serious: Yes (Other)
  Sender: FDA-Public Use
  Company Number: US-ROCHE-707801

PATIENT
  Sex: Female

DRUGS (9)
  1. BONIVA [Suspect]
     Indication: DRUG USE FOR UNKNOWN INDICATION
     Route: 065
     Dates: start: 20070101
  2. PREDNISONE [Suspect]
     Indication: DRUG USE FOR UNKNOWN INDICATION
     Route: 065
  3. FOSAMAX [Suspect]
     Indication: DRUG USE FOR UNKNOWN INDICATION
     Route: 065
  4. ENTOCORT EC [Suspect]
     Indication: DRUG USE FOR UNKNOWN INDICATION
     Route: 065
  5. QUESTRAN [Concomitant]
  6. TYLENOL W/ CODEINE [Concomitant]
  7. ANTACID TAB [Concomitant]
     Dosage: DRUG REPORTED AS UNKNOWN ANTACID
  8. XIFAXAN [Concomitant]
  9. XANAX [Concomitant]

REACTIONS (3)
  - CROHN'S DISEASE [None]
  - DRUG INEFFECTIVE [None]
  - OSTEOPOROSIS [None]
